FAERS Safety Report 19432229 (Version 1)
Quarter: 2021Q2

REPORT INFORMATION
  Report Type: Spontaneous
  Country: US (occurrence: US)
  Receive Date: 20210617
  Receipt Date: 20210617
  Transmission Date: 20210717
  Serious: No
  Sender: FDA-Public Use
  Company Number: US-CATALYST PHARMACEUTICALS, INC-2021CAT00144

PATIENT
  Age: 61 Year
  Sex: Female
  Weight: 72.56 kg

DRUGS (13)
  1. UNSPECIFIED CHRONIC SINUSITIS MEDICATION [Concomitant]
  2. NOVOCAINE [Suspect]
     Active Substance: PROCAINE
     Dosage: ^3 TIMES THE NORMAL AMOUNT^
     Dates: start: 20210407, end: 20210407
  3. MAGNESIUM [Concomitant]
     Active Substance: MAGNESIUM
  4. MELATONIN [Concomitant]
     Active Substance: MELATONIN
  5. FIRDAPSE [Suspect]
     Active Substance: AMIFAMPRIDINE PHOSPHATE
     Indication: MYASTHENIC SYNDROME
     Dosage: 10 MG, 3X/DAY
     Route: 048
     Dates: start: 202007
  6. NOVOCAINE [Suspect]
     Active Substance: PROCAINE
     Indication: INDUCTION OF ANAESTHESIA
     Dosage: UNK
     Dates: start: 20210407, end: 20210407
  7. NEXIUM [Concomitant]
     Active Substance: ESOMEPRAZOLE MAGNESIUM
  8. IVIG [Concomitant]
     Active Substance: HUMAN IMMUNOGLOBULIN G
  9. PREDNISONE. [Concomitant]
     Active Substance: PREDNISONE
  10. CRESTOR [Concomitant]
     Active Substance: ROSUVASTATIN CALCIUM
  11. CALCIUM [Concomitant]
     Active Substance: CALCIUM
  12. GUAIFENESIN. [Concomitant]
     Active Substance: GUAIFENESIN
  13. XYZAL [Concomitant]
     Active Substance: LEVOCETIRIZINE DIHYDROCHLORIDE

REACTIONS (1)
  - Inhibitory drug interaction [Recovered/Resolved]

NARRATIVE: CASE EVENT DATE: 20210407
